FAERS Safety Report 13888407 (Version 1)
Quarter: 2017Q3

REPORT INFORMATION
  Report Type: Spontaneous
  Country: DE (occurrence: DE)
  Receive Date: 20170822
  Receipt Date: 20170822
  Transmission Date: 20171127
  Serious: Yes (Hospitalization)
  Sender: FDA-Public Use
  Company Number: PHHY2017DE121440

PATIENT
  Age: 80 Year
  Sex: Female

DRUGS (1)
  1. COSENTYX [Suspect]
     Active Substance: SECUKINUMAB
     Indication: PSORIASIS
     Dosage: 300 MG, 4W
     Route: 065

REACTIONS (18)
  - Sleep disorder [Unknown]
  - Pain of skin [Unknown]
  - Rash [Unknown]
  - Chills [Unknown]
  - Cough [Unknown]
  - Weight decreased [Unknown]
  - Pyrexia [Unknown]
  - Dysuria [Unknown]
  - Fatigue [Unknown]
  - Urinary tract infection [Unknown]
  - Oral candidiasis [Unknown]
  - Peripheral swelling [Unknown]
  - Influenza [Unknown]
  - Hyperhidrosis [Unknown]
  - Myalgia [Unknown]
  - Nasopharyngitis [Unknown]
  - Feeling cold [Unknown]
  - Dyspnoea [Unknown]
